FAERS Safety Report 9416193 (Version 1)
Quarter: 2013Q3

REPORT INFORMATION
  Report Type: Spontaneous
  Country: US (occurrence: None)
  Receive Date: 20130723
  Receipt Date: 20130723
  Transmission Date: 20140515
  Serious: No
  Sender: FDA-Public Use
  Company Number: None

PATIENT
  Age: 44 Year
  Sex: Female
  Weight: 77.11 kg

DRUGS (1)
  1. GLYCERYL TRINITRATE [Suspect]
     Indication: VERTIGO
     Dosage: 1 PATH, Q 3 DAYS; 2 HOURS 15 MINUTES
     Route: 062
     Dates: start: 20130712, end: 20130712

REACTIONS (3)
  - Malaise [None]
  - Vision blurred [None]
  - Gait disturbance [None]
